FAERS Safety Report 25583746 (Version 1)
Quarter: 2025Q3

REPORT INFORMATION
  Report Type: Spontaneous
  Country: US (occurrence: US)
  Receive Date: 20250721
  Receipt Date: 20250721
  Transmission Date: 20251021
  Serious: No
  Sender: BIOCON
  Company Number: US-MIMS-BCONMC-10897

PATIENT

DRUGS (1)
  1. FULPHILA [Suspect]
     Active Substance: PEGFILGRASTIM-JMDB
     Indication: Product used for unknown indication
     Dosage: 6 MILLIGRAM, Q2W (AS DIRECTED) (2 HOURS  AFTER THE THERAPY, EVERY 14 DAYS)
     Route: 058

REACTIONS (1)
  - Device issue [Unknown]
